FAERS Safety Report 8889413 (Version 2)
Quarter: 2012Q4

REPORT INFORMATION
  Report Type: 
  Country: US (occurrence: None)
  Receive Date: 20121107
  Receipt Date: 20121127
  Transmission Date: 20130627
  Serious: Yes (Hospitalization)
  Sender: FDA-Public Use
  Company Number: None

PATIENT
  Age: 58 Year
  Sex: Male
  Weight: 97 kg

DRUGS (3)
  1. ROPIVACAINE [Suspect]
  2. KETOROLAC [Suspect]
  3. EPINEPHRINE [Suspect]

REACTIONS (3)
  - Culture wound positive [None]
  - Wound infection staphylococcal [None]
  - Product contamination [None]
